FAERS Safety Report 7864789-1 (Version None)
Quarter: 2011Q4

REPORT INFORMATION
  Report Type: 
  Country: None (occurrence: None)
  Receive Date: 20111028
  Receipt Date: 20101116
  Transmission Date: 20120403
  Serious: Yes (Hospitalization)
  Sender: FDA-Public Use
  Company Number: US-GLAXOSMITHKLINE-A0786912A

PATIENT
  Sex: Male
  Weight: 73.6 kg

DRUGS (7)
  1. ALBUTEROL [Concomitant]
  2. SEREVENT [Suspect]
     Indication: ASTHMA
     Route: 055
  3. SINGULAIR [Concomitant]
  4. QVAR 40 [Concomitant]
  5. ADVAIR DISKUS 100/50 [Suspect]
     Indication: ASTHMA
     Dosage: 1PUFF TWICE PER DAY
     Route: 055
     Dates: start: 20041116
  6. HYDROXYZINE [Concomitant]
  7. FLONASE [Concomitant]

REACTIONS (1)
  - ASTHMA [None]
